FAERS Safety Report 21547555 (Version 2)
Quarter: 2023Q4

REPORT INFORMATION
  Report Type: Spontaneous
  Country: CN (occurrence: CN)
  Receive Date: 20221103
  Receipt Date: 20231006
  Transmission Date: 20240110
  Serious: Yes (Life-Threatening)
  Sender: FDA-Public Use
  Company Number: CN-BAYER-2022A152789

PATIENT
  Age: 66 Year
  Sex: Female

DRUGS (2)
  1. ULTRAVIST [Suspect]
     Active Substance: IOPROMIDE
     Indication: Computerised tomogram head
     Dosage: 40 ML, ONCE
     Route: 042
     Dates: start: 20220921, end: 20220921
  2. ULTRAVIST [Suspect]
     Active Substance: IOPROMIDE
     Indication: Carotid artery stenosis

REACTIONS (6)
  - Trismus [Recovering/Resolving]
  - Seizure [Recovering/Resolving]
  - Nausea [Recovering/Resolving]
  - Chest discomfort [Recovering/Resolving]
  - Blood pressure systolic increased [None]
  - Dyspnoea [None]

NARRATIVE: CASE EVENT DATE: 20220921
